FAERS Safety Report 7738285-6 (Version None)
Quarter: 2011Q3

REPORT INFORMATION
  Report Type: 
  Country: None (occurrence: None)
  Receive Date: 20110908
  Receipt Date: 20110902
  Transmission Date: 20111222
  Serious: Yes (Other)
  Sender: FDA-Public Use
  Company Number: US-ACTELION-A-US2011-52257

PATIENT

DRUGS (7)
  1. EPOPROSTENOL SODIUM [Suspect]
     Dosage: 13 NG/KG, PER MIN
     Route: 042
     Dates: start: 20110716
  2. COUMADIN [Concomitant]
  3. TRACLEER [Concomitant]
     Indication: PULMONARY ARTERIAL HYPERTENSION
     Route: 048
  4. EPOPROSTENOL SODIUM [Suspect]
     Dosage: 12 NG/KG, PER MIN
     Route: 042
  5. SILDENAFIL CITRATE [Concomitant]
  6. CALCIUM CHANNEL BLOCKERS [Concomitant]
  7. EPOPROSTENOL SODIUM [Suspect]
     Indication: PULMONARY ARTERIAL HYPERTENSION
     Dosage: 6 NG/KG, PER MIN
     Route: 042
     Dates: start: 20110707

REACTIONS (3)
  - SKIN DISCOLOURATION [None]
  - HEADACHE [None]
  - BREAST CANCER [None]
